FAERS Safety Report 10575591 (Version 1)
Quarter: 2014Q4

REPORT INFORMATION
  Report Type: Spontaneous
  Country: US (occurrence: US)
  Receive Date: 20141111
  Receipt Date: 20141111
  Transmission Date: 20150529
  Serious: Yes (Death)
  Sender: FDA-Public Use
  Company Number: US-PFIZER INC-2014305537

PATIENT
  Age: 65 Year
  Sex: Male
  Weight: 98 kg

DRUGS (2)
  1. INLYTA [Suspect]
     Active Substance: AXITINIB
     Indication: RENAL CANCER
     Dosage: UNK
     Dates: start: 2013, end: 2013
  2. INSULIN [Concomitant]
     Active Substance: INSULIN NOS
     Indication: DIABETES MELLITUS
     Dosage: UNK

REACTIONS (4)
  - Angiopathy [Unknown]
  - Epistaxis [Unknown]
  - Renal cancer [Fatal]
  - Disease progression [Fatal]

NARRATIVE: CASE EVENT DATE: 2013
